FAERS Safety Report 10218484 (Version 1)
Quarter: 2014Q2

REPORT INFORMATION
  Report Type: Spontaneous
  Country: SE (occurrence: SE)
  Receive Date: 20140605
  Receipt Date: 20140605
  Transmission Date: 20141212
  Serious: Yes (Other)
  Sender: FDA-Public Use
  Company Number: SE-ABBOTT-14X-150-1180642-00

PATIENT
  Sex: Female

DRUGS (1)
  1. RYTMONORM [Suspect]
     Indication: PRODUCT USED FOR UNKNOWN INDICATION

REACTIONS (5)
  - Cardiac fibrillation [Recovered/Resolved]
  - Cardiac fibrillation [Recovered/Resolved]
  - Cardiac fibrillation [Recovered/Resolved]
  - Product quality issue [Unknown]
  - Malaise [Unknown]
